FAERS Safety Report 24951521 (Version 1)
Quarter: 2025Q1

REPORT INFORMATION
  Report Type: Spontaneous
  Country: US (occurrence: US)
  Receive Date: 20250210
  Receipt Date: 20250210
  Transmission Date: 20250409
  Serious: No
  Sender: INTRA-CELLULAR THERAPIES
  Company Number: US-INTRA-CELLULAR THERAPIES, INC.-2024ICT01787

PATIENT
  Age: 21 Year
  Sex: Female

DRUGS (2)
  1. CAPLYTA [Suspect]
     Active Substance: LUMATEPERONE
     Indication: Bipolar I disorder
     Dosage: 42 MG, 1X/DAY AT NIGHT
     Dates: start: 202405
  2. CAPLYTA [Suspect]
     Active Substance: LUMATEPERONE
     Dosage: 12 MG ^BOOSTER,^ 1X/DAY AT 3:00 PM
     Dates: start: 2024

REACTIONS (6)
  - Confusional state [Recovering/Resolving]
  - Electric shock sensation [Recovering/Resolving]
  - Paraesthesia [Recovering/Resolving]
  - Drug withdrawal syndrome [Recovering/Resolving]
  - Dizziness [Recovering/Resolving]
  - Tremor [Recovering/Resolving]

NARRATIVE: CASE EVENT DATE: 20240101
